FAERS Safety Report 7934165-1 (Version None)
Quarter: 2011Q4

REPORT INFORMATION
  Report Type: 
  Country: None (occurrence: None)
  Receive Date: 20111122
  Receipt Date: 20111115
  Transmission Date: 20120403
  Serious: Yes (Hospitalization)
  Sender: FDA-Public Use
  Company Number: US-US-EMD SERONO, INC.-7096365

PATIENT
  Sex: Female

DRUGS (4)
  1. CELLCEPT [Concomitant]
     Indication: MULTIPLE SCLEROSIS
     Dates: end: 20110901
  2. REBIF [Suspect]
     Indication: MULTIPLE SCLEROSIS
     Dates: start: 20080515
  3. BACLOFEN [Concomitant]
     Indication: MUSCLE SPASTICITY
  4. REBIF [Suspect]
     Dates: start: 20111001

REACTIONS (3)
  - CLOSTRIDIAL INFECTION [None]
  - URINARY TRACT INFECTION [None]
  - MULTIPLE SCLEROSIS RELAPSE [None]
